FAERS Safety Report 13736300 (Version 1)
Quarter: 2017Q3

REPORT INFORMATION
  Report Type: Spontaneous
  Country: TW (occurrence: TW)
  Receive Date: 20170710
  Receipt Date: 20170710
  Transmission Date: 20171127
  Serious: Yes (Hospitalization)
  Sender: FDA-Public Use
  Company Number: TW-BAYER-2017-125281

PATIENT
  Age: 89 Year
  Sex: Female

DRUGS (4)
  1. ATORVASTATIN [Concomitant]
     Active Substance: ATORVASTATIN
  2. PIOGLITAZONE. [Suspect]
     Active Substance: PIOGLITAZONE
  3. ASPIRIN. [Suspect]
     Active Substance: ASPIRIN
  4. REPAGLINIDE. [Suspect]
     Active Substance: REPAGLINIDE
     Dosage: 1 MG, TID

REACTIONS (1)
  - Hypoglycaemia [None]
